FAERS Safety Report 8555194-3 (Version None)
Quarter: 2012Q3

REPORT INFORMATION
  Report Type: 
  Country: None (occurrence: None)
  Receive Date: 20120731
  Receipt Date: 20120724
  Transmission Date: 20120928
  Serious: Yes (Hospitalization)
  Sender: FDA-Public Use
  Company Number: FR-RB-042794-12

PATIENT
  Age: 35 Year
  Sex: Female

DRUGS (2)
  1. SUBUTEX [Suspect]
     Dosage: UNKNOWN DOSAGE DETAILS
     Route: 045
     Dates: start: 20020101
  2. SUBUTEX [Suspect]
     Indication: PRODUCT USED FOR UNKNOWN INDICATION
     Dosage: SNIFF AT LEAST 8 TIMES DAILY
     Route: 045
     Dates: start: 20030101

REACTIONS (5)
  - INTENTIONAL DRUG MISUSE [None]
  - WEIGHT DECREASED [None]
  - TOOTH DISORDER [None]
  - ANOSMIA [None]
  - AGGRESSION [None]
